FAERS Safety Report 14758294 (Version 7)
Quarter: 2018Q3

REPORT INFORMATION
  Report Type: Spontaneous
  Country: CA (occurrence: CA)
  Receive Date: 20180413
  Receipt Date: 20180926
  Transmission Date: 20181010
  Serious: Yes (Other)
  Sender: FDA-Public Use
  Company Number: CA-CELLTRION INC.-2018CA018698

PATIENT

DRUGS (10)
  1. FLOMAX [Concomitant]
     Active Substance: TAMSULOSIN HYDROCHLORIDE
     Dosage: UNK
  2. INFLECTRA [Suspect]
     Active Substance: INFLIXIMAB-DYYB
     Dosage: 10 MG/KG, UNK;
     Route: 042
  3. PAXIL [Concomitant]
     Active Substance: PAROXETINE HYDROCHLORIDE
     Dosage: UNK
  4. INFLECTRA [Suspect]
     Active Substance: INFLIXIMAB-DYYB
     Dosage: 5 MG/KG Q (EVERY) 0,2,6 WEEKS, THEN EVERY 8 WEEKS)
     Route: 042
     Dates: start: 20180703
  5. INFLECTRA [Suspect]
     Active Substance: INFLIXIMAB-DYYB
     Indication: ANKYLOSING SPONDYLITIS
     Dosage: 5 MG/KG, CYCLIC (EVERY 0, 2, 6 WEEKS, THEN EVERY 8 WEEKS
     Route: 042
     Dates: start: 20180306
  6. PANTOLOC                           /01263201/ [Concomitant]
     Active Substance: PANTOPRAZOLE SODIUM
     Dosage: UNK
  7. INFLECTRA [Suspect]
     Active Substance: INFLIXIMAB-DYYB
     Indication: CROHN^S DISEASE
     Dosage: 5 MG/KG, CYCLIC (EVERY 0, 2, 6 WEEKS, THEN EVERY 8 WEEKS
     Route: 042
     Dates: start: 20180221
  8. INFLECTRA [Suspect]
     Active Substance: INFLIXIMAB-DYYB
     Dosage: 5 MG/KG, CYCLIC (EVERY 0, 2, 6 WEEKS, THEN EVERY 8 WEEKS
     Route: 042
     Dates: start: 20180411
  9. SOLU?MEDROL [Concomitant]
     Active Substance: METHYLPREDNISOLONE SODIUM SUCCINATE
  10. PREDNISONE. [Concomitant]
     Active Substance: PREDNISONE
     Dosage: UNK
     Dates: start: 20171018

REACTIONS (8)
  - Feeling hot [Not Recovered/Not Resolved]
  - Blood pressure fluctuation [Unknown]
  - Erythema [Not Recovered/Not Resolved]
  - Inflammation [Not Recovered/Not Resolved]
  - Drug level below therapeutic [Unknown]
  - Inappropriate schedule of drug administration [Unknown]
  - Blood pressure increased [Unknown]
  - Wound infection [Not Recovered/Not Resolved]

NARRATIVE: CASE EVENT DATE: 20180403
